FAERS Safety Report 8901824 (Version 1)
Quarter: 2012Q4

REPORT INFORMATION
  Report Type: Spontaneous
  Country: US (occurrence: None)
  Receive Date: 20121106
  Receipt Date: 20121106
  Transmission Date: 20130627
  Serious: Yes (Other)
  Sender: FDA-Public Use
  Company Number: AXC-2012-000486

PATIENT
  Age: 52 Year
  Sex: Female
  Weight: 59 kg

DRUGS (1)
  1. CANASA [Suspect]
     Indication: ULCERATIVE PROCTITIS
     Route: 054
     Dates: start: 201201, end: 201203

REACTIONS (2)
  - Diarrhoea haemorrhagic [None]
  - Weight decreased [None]
